FAERS Safety Report 21004102 (Version 1)
Quarter: 2022Q2

REPORT INFORMATION
  Report Type: Report from Study
  Country: CA (occurrence: None)
  Receive Date: 20220624
  Receipt Date: 20220624
  Transmission Date: 20220721
  Serious: Yes (Death, Hospitalization)
  Sender: FDA-Public Use
  Company Number: 2022A204030

PATIENT
  Age: 84 Year
  Sex: Male

DRUGS (11)
  1. IMFINZI [Suspect]
     Active Substance: DURVALUMAB
     Indication: Small cell lung cancer extensive stage
     Route: 042
     Dates: start: 20220509
  2. APIXABAN [Concomitant]
     Active Substance: APIXABAN
  3. CLOPIDOGREL [Concomitant]
     Active Substance: CLOPIDOGREL BISULFATE
  4. PERINDOPRIL [Concomitant]
     Active Substance: PERINDOPRIL
  5. DEXAMETHASONE [Concomitant]
     Active Substance: DEXAMETHASONE
  6. EZETIMIBE [Concomitant]
     Active Substance: EZETIMIBE
  7. NIFEDITINE XL [Concomitant]
  8. PRUVASTATINE [Concomitant]
  9. ROSUVASTATIN [Concomitant]
     Active Substance: ROSUVASTATIN
  10. SATOLOL [Concomitant]
  11. PANTOPRAZOLE MAGNESIUM [Concomitant]
     Active Substance: PANTOPRAZOLE MAGNESIUM

REACTIONS (2)
  - Death [Fatal]
  - Hospitalisation [Unknown]

NARRATIVE: CASE EVENT DATE: 20220101
